FAERS Safety Report 22348871 (Version 1)
Quarter: 2023Q2

REPORT INFORMATION
  Report Type: Spontaneous
  Country: DE (occurrence: DE)
  Receive Date: 20230522
  Receipt Date: 20230522
  Transmission Date: 20230722
  Serious: Yes (Other)
  Sender: FDA-Public Use
  Company Number: None

PATIENT
  Age: 42 Year
  Sex: Female
  Weight: 77 kg

DRUGS (1)
  1. CIPROFLOXACIN HYDROCHLORIDE [Suspect]
     Active Substance: CIPROFLOXACIN HYDROCHLORIDE
     Indication: Cystitis noninfective
     Dosage: 250 MG, (0.5 DAYS), (2 MAL AM TAG 250 MG)
     Route: 048
     Dates: start: 20220607, end: 20220609

REACTIONS (15)
  - Arrhythmia [Recovering/Resolving]
  - Neuropathy peripheral [Recovered/Resolved with Sequelae]
  - Gait disturbance [Not Recovered/Not Resolved]
  - Dysstasia [Not Recovered/Not Resolved]
  - Arthralgia [Recovered/Resolved with Sequelae]
  - Monoparesis [Not Recovered/Not Resolved]
  - Pain in extremity [Not Recovered/Not Resolved]
  - Chronic fatigue syndrome [Recovered/Resolved with Sequelae]
  - Vasculitis [Recovered/Resolved with Sequelae]
  - Fatigue [Recovering/Resolving]
  - Palpitations [Recovering/Resolving]
  - Impaired quality of life [Not Recovered/Not Resolved]
  - Musculoskeletal discomfort [Recovering/Resolving]
  - Visual impairment [Recovered/Resolved with Sequelae]
  - Diarrhoea [Recovered/Resolved with Sequelae]

NARRATIVE: CASE EVENT DATE: 20220610
